FAERS Safety Report 5844720-0 (Version None)
Quarter: 2008Q3

REPORT INFORMATION
  Report Type: 
  Country: None (occurrence: None)
  Receive Date: 20080812
  Receipt Date: 20080804
  Transmission Date: 20090109
  Serious: Yes (Other)
  Sender: FDA-Public Use
  Company Number: US-GDP-08404345

PATIENT
  Age: 23 Year
  Sex: Female
  Weight: 70.3075 kg

DRUGS (1)
  1. DIFFERIN [Suspect]
     Indication: ACNE
     Dosage: 1 DF QD TOPICAL
     Route: 061

REACTIONS (4)
  - HEADACHE [None]
  - INTRACRANIAL PRESSURE INCREASED [None]
  - MUSCULOSKELETAL STIFFNESS [None]
  - PAPILLOEDEMA [None]
